FAERS Safety Report 4811386-8 (Version None)
Quarter: 2005Q4

REPORT INFORMATION
  Report Type: 
  Country: None (occurrence: None)
  Receive Date: 20051026
  Receipt Date: 20051026
  Transmission Date: 20060501
  Serious: Yes (Hospitalization)
  Sender: FDA-Public Use
  Company Number: None

PATIENT
  Sex: Male
  Weight: 102.0593 kg

DRUGS (1)
  1. VANCOMYCIN [Suspect]
     Indication: CLOSTRIDIUM COLITIS
     Dates: start: 20051022, end: 20051023

REACTIONS (8)
  - BLISTER [None]
  - DRUG HYPERSENSITIVITY [None]
  - EAR DISORDER [None]
  - ERYTHEMA [None]
  - EYE SWELLING [None]
  - SKIN SWELLING [None]
  - URTICARIA [None]
  - WHITE BLOOD CELL COUNT INCREASED [None]
